FAERS Safety Report 17910163 (Version 1)
Quarter: 2020Q2

REPORT INFORMATION
  Report Type: Spontaneous
  Country: US (occurrence: US)
  Receive Date: 20200618
  Receipt Date: 20200618
  Transmission Date: 20200714
  Serious: Yes (Other)
  Sender: FDA-Public Use
  Company Number: US-ASTRAZENECA-2020SE76375

PATIENT
  Age: 22722 Day
  Sex: Male

DRUGS (1)
  1. BYDUREON BCISE [Suspect]
     Active Substance: EXENATIDE
     Route: 058
     Dates: start: 2019

REACTIONS (5)
  - Gait disturbance [Unknown]
  - Balance disorder [Unknown]
  - Device issue [Unknown]
  - Incorrect dose administered [Unknown]
  - Eustachian tube obstruction [Recovering/Resolving]

NARRATIVE: CASE EVENT DATE: 20200611
